FAERS Safety Report 25762928 (Version 1)
Quarter: 2025Q3

REPORT INFORMATION
  Report Type: Spontaneous
  Country: EU (occurrence: EU)
  Receive Date: 20250904
  Receipt Date: 20250904
  Transmission Date: 20251021
  Serious: Yes (Other)
  Sender: JOHNSON AND JOHNSON
  Company Number: EU-JNJFOC-20250836500

PATIENT
  Age: 48 Year
  Sex: Female

DRUGS (4)
  1. SPRAVATO [Suspect]
     Active Substance: ESKETAMINE
     Indication: Depression
     Dosage: FOR 4 WEEKS
     Route: 045
  2. MIRTAZAPINE [Concomitant]
     Active Substance: MIRTAZAPINE
     Indication: Depression
  3. VENLAFAXINE [Concomitant]
     Active Substance: VENLAFAXINE HYDROCHLORIDE
     Indication: Depression
  4. AMISULPRIDE [Concomitant]
     Active Substance: AMISULPRIDE
     Indication: Depression

REACTIONS (7)
  - Hallucination, visual [Unknown]
  - Nasal discomfort [Unknown]
  - Dizziness [Unknown]
  - Blood pressure diastolic increased [Unknown]
  - Dissociation [Unknown]
  - Psychomotor skills impaired [Unknown]
  - Muscle rigidity [Unknown]
